FAERS Safety Report 6288266-7 (Version None)
Quarter: 2009Q3

REPORT INFORMATION
  Report Type: 
  Country: None (occurrence: None)
  Receive Date: 20090723
  Receipt Date: 20090423
  Transmission Date: 20100115
  Serious: No
  Sender: FDA-Public Use
  Company Number: PYLE-2009-010

PATIENT
  Sex: Male

DRUGS (1)
  1. PYLERA [Suspect]
     Dates: start: 20090422

REACTIONS (1)
  - CHEST PAIN [None]
